FAERS Safety Report 19857969 (Version 1)
Quarter: 2021Q3

REPORT INFORMATION
  Report Type: Other
  Country: US (occurrence: US)
  Receive Date: 20210921
  Receipt Date: 20210921
  Transmission Date: 20211014
  Serious: Yes (Death, Hospitalization, Other)
  Sender: FDA-Public Use
  Company Number: US-NUVO PHARMACEUTICALS INC-2118592

PATIENT
  Age: 19 Year
  Sex: Male
  Weight: 198.41 kg

DRUGS (2)
  1. DIAZEPAM. [Suspect]
     Active Substance: DIAZEPAM
     Indication: PRODUCT USED FOR UNKNOWN INDICATION
     Route: 065
  2. TAPENTADOL [Suspect]
     Active Substance: TAPENTADOL
     Route: 065

REACTIONS (4)
  - Toxicity to various agents [Fatal]
  - Prescription drug used without a prescription [Fatal]
  - Congestive cardiomyopathy [Fatal]
  - Respiratory depression [Fatal]
